FAERS Safety Report 7519475-4 (Version None)
Quarter: 2011Q2

REPORT INFORMATION
  Report Type: 
  Country: None (occurrence: None)
  Receive Date: 20110602
  Receipt Date: 20110527
  Transmission Date: 20111010
  Serious: Yes (Other)
  Sender: FDA-Public Use
  Company Number: GB-MERCK-1105GBR00109

PATIENT
  Age: 70 Year
  Sex: Male
  Weight: 73 kg

DRUGS (9)
  1. BENDROFLUMETHIAZIDE [Concomitant]
     Route: 065
  2. CANDESARTAN [Concomitant]
     Route: 065
  3. MOMETASONE FUROATE [Concomitant]
     Route: 055
  4. BUDESONIDE AND FORMOTEROL FUMARATE [Concomitant]
     Route: 065
  5. ALBUTEROL [Concomitant]
     Route: 065
  6. METFORMIN [Concomitant]
     Route: 065
  7. DICLOFENAC [Concomitant]
     Route: 065
  8. JANUVIA [Suspect]
     Indication: DIABETES MELLITUS
     Route: 048
     Dates: start: 20100903, end: 20100920
  9. SIMVASTATIN [Concomitant]
     Route: 048

REACTIONS (5)
  - JAUNDICE [None]
  - ALANINE AMINOTRANSFERASE INCREASED [None]
  - BLOOD ALKALINE PHOSPHATASE INCREASED [None]
  - DIARRHOEA [None]
  - GAMMA-GLUTAMYLTRANSFERASE INCREASED [None]
